FAERS Safety Report 9602644 (Version 1)
Quarter: 2013Q4

REPORT INFORMATION
  Report Type: Spontaneous
  Country: US (occurrence: US)
  Receive Date: 20131007
  Receipt Date: 20131007
  Transmission Date: 20140711
  Serious: Yes (Other)
  Sender: FDA-Public Use
  Company Number: US-PFIZER INC-2013286620

PATIENT
  Sex: Female

DRUGS (2)
  1. CHANTIX [Suspect]
     Dosage: 0.5 MG, UNK
     Dates: start: 2008, end: 2008
  2. CHANTIX [Suspect]
     Dosage: 1 MG, UNK
     Dates: start: 2008, end: 2008

REACTIONS (1)
  - Hallucination, visual [Unknown]
